FAERS Safety Report 11871405 (Version 1)
Quarter: 2015Q4

REPORT INFORMATION
  Report Type: Spontaneous
  Country: JP (occurrence: JP)
  Receive Date: 20151228
  Receipt Date: 20151228
  Transmission Date: 20160305
  Serious: Yes (Other)
  Sender: FDA-Public Use
  Company Number: PHHY2015JP166026

PATIENT
  Age: 35 Year
  Sex: Male

DRUGS (9)
  1. FUROSEMIDE. [Suspect]
     Active Substance: FUROSEMIDE
     Indication: CARDIAC FAILURE ACUTE
     Dosage: 20 MG, PER DAY
     Route: 048
  2. VASOPRESSIN. [Concomitant]
     Active Substance: VASOPRESSIN
     Indication: DIURETIC THERAPY
     Route: 065
  3. SODIUM CHLORIDE. [Suspect]
     Active Substance: SODIUM CHLORIDE
     Indication: CARDIAC FAILURE ACUTE
     Dosage: 500 ML, PER DAY
     Route: 042
  4. CANDESARTAN [Concomitant]
     Active Substance: CANDESARTAN
     Indication: DIURETIC THERAPY
     Dosage: 8 MG PER DAY
     Route: 065
  5. TOLVAPTAN [Concomitant]
     Active Substance: TOLVAPTAN
     Indication: DIURETIC THERAPY
     Route: 065
  6. FUROSEMIDE. [Suspect]
     Active Substance: FUROSEMIDE
     Dosage: 40 MG, UNK
     Route: 065
  7. FUROSEMIDE. [Suspect]
     Active Substance: FUROSEMIDE
     Dosage: 120 UNK, PER DAY
     Route: 065
  8. TRICHLORMETHIAZIDE [Concomitant]
     Active Substance: TRICHLORMETHIAZIDE
     Indication: DIURETIC THERAPY
     Dosage: 2 MG, PER DAY
     Route: 065
  9. LISINOPRIL. [Concomitant]
     Active Substance: LISINOPRIL
     Indication: PRODUCT USED FOR UNKNOWN INDICATION
     Dosage: 10 MG, PER DAY
     Route: 065

REACTIONS (2)
  - Proteinuria [Recovering/Resolving]
  - Hypoalbuminaemia [Recovering/Resolving]
